FAERS Safety Report 20523352 (Version 2)
Quarter: 2025Q1

REPORT INFORMATION
  Report Type: Spontaneous
  Country: ES (occurrence: ES)
  Receive Date: 20220227
  Receipt Date: 20250308
  Transmission Date: 20250409
  Serious: Yes (Other)
  Sender: AUROBINDO
  Company Number: ES-AEMPS-1115385

PATIENT
  Age: 25 Year
  Sex: Female
  Weight: 43 kg

DRUGS (1)
  1. IBUPROFEN [Suspect]
     Active Substance: IBUPROFEN
     Indication: Pain
     Route: 048
     Dates: start: 20220216, end: 20220216

REACTIONS (3)
  - Dyspnoea [Recovered/Resolved]
  - Tachycardia [Recovered/Resolved]
  - Pharyngeal inflammation [Recovered/Resolved]

NARRATIVE: CASE EVENT DATE: 20220216
